FAERS Safety Report 5059385-8 (Version None)
Quarter: 2006Q3

REPORT INFORMATION
  Report Type: 
  Country: None (occurrence: None)
  Receive Date: 20060718
  Receipt Date: 20060705
  Transmission Date: 20061208
  Serious: Yes (Hospitalization)
  Sender: FDA-Public Use
  Company Number: 2006BI008430

PATIENT
  Age: 53 Year
  Sex: Female
  Weight: 52 kg

DRUGS (2)
  1. AVONEX [Suspect]
     Indication: MULTIPLE SCLEROSIS
     Dosage: 30 UG;QW;IM
     Route: 030
     Dates: start: 19970101
  2. AVONEX [Suspect]
     Indication: MULTIPLE SCLEROSIS
     Dosage: 30 UG;QW;IM
     Route: 030

REACTIONS (8)
  - BALANCE DISORDER [None]
  - CARDIOVASCULAR DISORDER [None]
  - DEAFNESS UNILATERAL [None]
  - EAR PAIN [None]
  - FALL [None]
  - HEADACHE [None]
  - HYPOACUSIS [None]
  - MULTIPLE SCLEROSIS RELAPSE [None]
